FAERS Safety Report 23673025 (Version 1)
Quarter: 2024Q1

REPORT INFORMATION
  Report Type: Spontaneous
  Country: JP (occurrence: JP)
  Receive Date: 20240326
  Receipt Date: 20240326
  Transmission Date: 20240410
  Serious: Yes (Other)
  Sender: FDA-Public Use
  Company Number: JP-SUN PHARMACEUTICAL INDUSTRIES LTD-2024RR-438343

PATIENT
  Age: 73 Year
  Sex: Male
  Weight: 83 kg

DRUGS (15)
  1. BACLOFEN [Suspect]
     Active Substance: BACLOFEN
     Indication: Complex regional pain syndrome
     Dosage: 10 MILLIGRAM, DAILY
     Route: 065
  2. NITROGLYCERIN [Suspect]
     Active Substance: NITROGLYCERIN
     Indication: Embolism
     Dosage: 10 MILLIGRAM, DAILY
     Route: 042
  3. PREGABALIN [Suspect]
     Active Substance: PREGABALIN
     Indication: Complex regional pain syndrome
     Dosage: 150 MILLIGRAM, DAILY
     Route: 065
  4. ASPIRIN [Suspect]
     Active Substance: ASPIRIN
     Indication: Complex regional pain syndrome
     Dosage: 20 MILLIGRAM, UNK
     Route: 065
  5. DAPAGLIFLOZIN [Suspect]
     Active Substance: DAPAGLIFLOZIN
     Indication: Embolism
     Dosage: 10 MILLIGRAM, DAILY
     Route: 048
  6. SPIRONOLACTONE [Suspect]
     Active Substance: SPIRONOLACTONE
     Indication: Embolism
     Dosage: 12.5 MILLIGRAM, DAILY
     Route: 048
  7. PRASUGREL [Suspect]
     Active Substance: PRASUGREL
     Indication: Complex regional pain syndrome
     Dosage: 324 MILLIGRAM
     Route: 065
  8. ACETAMINOPHEN [Suspect]
     Active Substance: ACETAMINOPHEN
     Indication: Complex regional pain syndrome
     Dosage: 650 MILLIGRAM, DAILY
     Route: 065
  9. TRAMADOL [Suspect]
     Active Substance: TRAMADOL\TRAMADOL HYDROCHLORIDE
     Indication: Complex regional pain syndrome
     Dosage: 75 MILLIGRAM, DAILY
     Route: 065
  10. FUROSEMIDE [Suspect]
     Active Substance: FUROSEMIDE
     Indication: Embolism
     Dosage: 20 MILLIGRAM, DAILY
     Route: 042
  11. NICARDIPINE [Suspect]
     Active Substance: NICARDIPINE
     Indication: Hypertensive emergency
     Dosage: UNK
     Route: 042
  12. IMIDAPRIL [Suspect]
     Active Substance: IMIDAPRIL
     Indication: Embolism
     Dosage: 5 MILLIGRAM, DAILY
     Route: 048
  13. AMITRIPTYLINE [Suspect]
     Active Substance: AMITRIPTYLINE
     Indication: Stenosis
     Dosage: 20 MILLIGRAM, DAILY
     Route: 065
  14. LANDIOLOL [Concomitant]
     Active Substance: LANDIOLOL
     Indication: Hypertensive emergency
     Dosage: STARTING AT 1 UG/KG/MIN AND INCREASING TO 5 UG/KG/MIN
     Route: 042
  15. EDOXABAN [Concomitant]
     Active Substance: EDOXABAN
     Indication: Embolism
     Dosage: 60 MILLIGRAM, DAILY
     Route: 065

REACTIONS (6)
  - Spontaneous haematoma [Unknown]
  - Drug ineffective [Unknown]
  - Cardiac failure acute [Unknown]
  - Ventricular failure [Unknown]
  - Atrial flutter [Unknown]
  - Hypertension [Unknown]
